FAERS Safety Report 6144779-X (Version None)
Quarter: 2009Q2

REPORT INFORMATION
  Report Type: 
  Country: None (occurrence: None)
  Receive Date: 20090401
  Receipt Date: 20090401
  Transmission Date: 20091009
  Serious: Yes (Hospitalization)
  Sender: FDA-Public Use
  Company Number: None

PATIENT
  Sex: Female
  Weight: 71.64 kg

DRUGS (12)
  1. ENBREL [Suspect]
     Dosage: 50MG/ML PEN INJCTR 50 MG QWEEK SUBCUTANEOUS
     Route: 058
     Dates: start: 20090303, end: 20090331
  2. CALCIUM + D (CALCIUM CARBONATE / VIT D) [Concomitant]
  3. CELEXA [Concomitant]
  4. COLACE (DOCUSATE SODIUM) [Concomitant]
  5. DETROL LA (TOLTERODINE TARTRATE LONG ACTING) [Concomitant]
  6. EC ASA (ASPIRIN ENTERIC COATED) [Concomitant]
  7. FERROUS GLUCONATE [Concomitant]
  8. FOLATE (FOLIC ACID) [Concomitant]
  9. NORTRIPTYLINE HCL [Concomitant]
  10. SYNTHROID [Concomitant]
  11. VITAMIN B12 [Concomitant]
  12. ZESTRIL [Concomitant]

REACTIONS (1)
  - LUPUS-LIKE SYNDROME [None]
